FAERS Safety Report 22308855 (Version 1)
Quarter: 2023Q2

REPORT INFORMATION
  Report Type: Spontaneous
  Country: GB (occurrence: GB)
  Receive Date: 20230511
  Receipt Date: 20230511
  Transmission Date: 20230722
  Serious: Yes (Other)
  Sender: FDA-Public Use
  Company Number: GB-ASTELLAS-2023US014579

PATIENT
  Age: 75 Year
  Sex: Female

DRUGS (3)
  1. GILTERITINIB [Suspect]
     Active Substance: GILTERITINIB
     Indication: FLT3 gene mutation
     Route: 065
     Dates: start: 202109
  2. GILTERITINIB [Suspect]
     Active Substance: GILTERITINIB
     Indication: Acute myeloid leukaemia recurrent
     Dosage: 200 MG, UNKNOWN FREQ.(DOSE INCREASED FOR COURSE TWO)
     Route: 065
     Dates: end: 202112
  3. GILTERITINIB [Suspect]
     Active Substance: GILTERITINIB
     Indication: Acute myeloid leukaemia refractory
     Dosage: 120 MG, UNKNOWN FREQ. (RESTARTED UNTIL PROGRESSION IN AUTUMN OF 2022)
     Route: 065
     Dates: start: 202201

REACTIONS (5)
  - Acute myeloid leukaemia [Unknown]
  - Pneumonia fungal [Unknown]
  - Anaemia [Unknown]
  - Platelet count decreased [Unknown]
  - Therapy non-responder [Unknown]

NARRATIVE: CASE EVENT DATE: 20211201
